FAERS Safety Report 5269576-9 (Version None)
Quarter: 2007Q1

REPORT INFORMATION
  Report Type: 
  Country: None (occurrence: None)
  Receive Date: 20070320
  Receipt Date: 20070314
  Transmission Date: 20070707
  Serious: Yes (Life-Threatening)
  Sender: FDA-Public Use
  Company Number: JP-BAYER-200710198BYL

PATIENT
  Age: 74 Year
  Sex: Male

DRUGS (10)
  1. ADALAT [Suspect]
     Indication: HYPERTENSION
     Dosage: TOTAL DAILY DOSE: 40 MG  UNIT DOSE: 20 MG
     Route: 048
     Dates: start: 20021227, end: 20070301
  2. ALLOPURINOL [Suspect]
     Dosage: TOTAL DAILY DOSE: 50 MG  UNIT DOSE: 100 MG
     Route: 048
     Dates: start: 20031017, end: 20070301
  3. CARDENALIN [Suspect]
     Dosage: TOTAL DAILY DOSE: 1 MG  UNIT DOSE: 1 MG
     Route: 048
     Dates: start: 20020730
  4. CARDENALIN [Suspect]
     Dosage: TOTAL DAILY DOSE: 4 MG  UNIT DOSE: 1 MG
     Route: 048
     Dates: end: 20070301
  5. INCREMIN [Concomitant]
     Dosage: UNIT DOSE: 6 MG/ML
     Route: 048
  6. GASTER D [Concomitant]
     Dosage: TOTAL DAILY DOSE: 20 MG  UNIT DOSE: 20 MG
     Route: 048
  7. PURSENNID [Concomitant]
     Dosage: UNIT DOSE: 12 MG
     Route: 048
  8. LASIX [Concomitant]
     Dosage: TOTAL DAILY DOSE: 40 MG  UNIT DOSE: 20 MG
     Route: 048
  9. KREMEZIN [Concomitant]
     Dosage: TOTAL DAILY DOSE: 6 G  UNIT DOSE: 2 G
     Route: 048
  10. PRECIPITATED CALCIUM CARBONATE [Concomitant]
     Dosage: TOTAL DAILY DOSE: 1500 MG  UNIT DOSE: 500 MG
     Route: 048

REACTIONS (1)
  - EOSINOPHIL COUNT INCREASED [None]
